FAERS Safety Report 26079585 (Version 1)
Quarter: 2025Q4

REPORT INFORMATION
  Report Type: Spontaneous
  Country: US (occurrence: US)
  Receive Date: 20251123
  Receipt Date: 20251123
  Transmission Date: 20260117
  Serious: No
  Sender: NODEN PHARMA
  Company Number: US-ARIS GLOBAL-NOD202501-000002

PATIENT
  Age: 83 Year
  Sex: Female

DRUGS (1)
  1. TEKTURNA [Suspect]
     Active Substance: ALISKIREN HEMIFUMARATE
     Indication: Hypertension
     Dosage: UNKNOWN

REACTIONS (3)
  - Eye disorder [Unknown]
  - Pain [Unknown]
  - Drug ineffective [Unknown]
